FAERS Safety Report 19611093 (Version 2)
Quarter: 2021Q3

REPORT INFORMATION
  Report Type: Report from Study
  Country: US (occurrence: US)
  Receive Date: 20210726
  Receipt Date: 20210804
  Transmission Date: 20211014
  Serious: No
  Sender: FDA-Public Use
  Company Number: NVSC2021US157687

PATIENT
  Age: 2 Month
  Sex: Male

DRUGS (1)
  1. ZOLGENSMA [Suspect]
     Active Substance: ONASEMNOGENE ABEPARVOVEC-XIOI
     Indication: SPINAL MUSCULAR ATROPHY
     Dosage: 1.1 MG/KG, ONCE/SINGLE (1.1X10^14VG/KG)
     Route: 042
     Dates: start: 20210709, end: 20210709

REACTIONS (4)
  - Somnolence [Unknown]
  - Sleep disorder [Unknown]
  - Blood glucose increased [Unknown]
  - White blood cell disorder [Unknown]

NARRATIVE: CASE EVENT DATE: 20210712
